FAERS Safety Report 21360949 (Version 1)
Quarter: 2022Q3

REPORT INFORMATION
  Report Type: Spontaneous
  Country: DE (occurrence: DE)
  Receive Date: 20220921
  Receipt Date: 20220921
  Transmission Date: 20221026
  Serious: Yes (Other)
  Sender: FDA-Public Use
  Company Number: None

PATIENT
  Sex: Male

DRUGS (9)
  1. DILTIAZEM HYDROCHLORIDE [Interacting]
     Active Substance: DILTIAZEM HYDROCHLORIDE
     Indication: Coronary artery disease
     Dosage: DAILY INTAKE
  2. CELECOXIB [Interacting]
     Active Substance: CELECOXIB
     Indication: Ankylosing spondylitis
     Dosage: IF NECESSARY, 2 TO 3 TABLETS OF CELECOXIB OVER 2 DAYS IN A MONTH
  3. CELECOXIB [Interacting]
     Active Substance: CELECOXIB
     Dosage: ONE TABLET OF CELECOXIB DAILY FOR ABOUT 5 DAYS. UNDER WHICH THE EVENTS OCCURRED
  4. CANDESARTAN [Interacting]
     Active Substance: CANDESARTAN
     Indication: Coronary artery disease
     Dosage: DAILY INTAKE
  5. MOLSIDOMINE [Interacting]
     Active Substance: MOLSIDOMINE
     Indication: Coronary artery disease
     Dosage: DAILY INTAKE
  6. RANEXA [Interacting]
     Active Substance: RANOLAZINE
     Indication: Coronary artery disease
     Dosage: DAILY INTAKE
  7. ROSUVASTATIN [Concomitant]
     Active Substance: ROSUVASTATIN
     Indication: Coronary artery disease
     Dosage: DAILY INTAKE
  8. XARELTO [Concomitant]
     Active Substance: RIVAROXABAN
     Indication: Coronary artery disease
     Dosage: DAILY INTAKE
  9. ASPIRIN [Concomitant]
     Active Substance: ASPIRIN
     Indication: Coronary artery disease
     Dosage: DAILY INTAKE

REACTIONS (3)
  - Drug interaction [Unknown]
  - Angina pectoris [Recovered/Resolved]
  - Chest pain [Recovered/Resolved]
